FAERS Safety Report 8574690-6 (Version None)
Quarter: 2012Q3

REPORT INFORMATION
  Report Type: 
  Country: None (occurrence: None)
  Receive Date: 20120807
  Receipt Date: 20120730
  Transmission Date: 20120928
  Serious: Yes (Hospitalization)
  Sender: FDA-Public Use
  Company Number: US-BIOGENIDEC-2012BI027902

PATIENT
  Age: 56 Year
  Sex: Female

DRUGS (1)
  1. AVONEX [Suspect]
     Indication: MULTIPLE SCLEROSIS
     Route: 030
     Dates: start: 20101021

REACTIONS (5)
  - SEPSIS [None]
  - CELLULITIS [None]
  - LACERATION [None]
  - BLOOD GLUCOSE INCREASED [None]
  - MULTIPLE SCLEROSIS RELAPSE [None]
